FAERS Safety Report 11605934 (Version 1)
Quarter: 2015Q3

REPORT INFORMATION
  Report Type: Spontaneous
  Country: US (occurrence: US)
  Receive Date: 20150916
  Receipt Date: 20150916
  Transmission Date: 20151125
  Serious: No
  Sender: FDA-Public Use
  Company Number: US-ELI_LILLY_AND_COMPANY-US201403003988

PATIENT
  Age: 56 Year
  Sex: Female
  Weight: 64.85 kg

DRUGS (2)
  1. HUMALOG [Suspect]
     Active Substance: INSULIN LISPRO
     Indication: PRODUCT USED FOR UNKNOWN INDICATION
     Dosage: UNK
     Route: 058
  2. HUMALOG [Suspect]
     Active Substance: INSULIN LISPRO
     Indication: PRODUCT USED FOR UNKNOWN INDICATION
     Dosage: UNK
     Route: 065

REACTIONS (7)
  - Pruritus [Recovered/Resolved]
  - Lipoma [Unknown]
  - Infusion site pruritus [Unknown]
  - Infusion site haemorrhage [Unknown]
  - Burning sensation [Unknown]
  - Infusion site pain [Unknown]
  - Scar [Unknown]

NARRATIVE: CASE EVENT DATE: 20140228
